FAERS Safety Report 12776035 (Version 1)
Quarter: 2016Q3

REPORT INFORMATION
  Report Type: Report from Study
  Country: CA (occurrence: CA)
  Receive Date: 20160923
  Receipt Date: 20160923
  Transmission Date: 20161109
  Serious: Yes (Other)
  Sender: FDA-Public Use
  Company Number: CA-TAKEDA-2016TUS016509

PATIENT
  Age: 41 Year
  Sex: Male

DRUGS (7)
  1. WELLBUTRIN [Concomitant]
     Active Substance: BUPROPION HYDROCHLORIDE
     Indication: COLITIS ULCERATIVE
     Dosage: 150 MG, QD
  2. CEPHALEXIN. [Concomitant]
     Active Substance: CEPHALEXIN
     Dosage: UNK, QD
  3. FOLIC ACID. [Concomitant]
     Active Substance: FOLIC ACID
     Dosage: 5 MG, QD
  4. VEDOLIZUMAB [Suspect]
     Active Substance: VEDOLIZUMAB
     Indication: COLITIS ULCERATIVE
     Dosage: 300 MG, UNK
     Route: 042
     Dates: start: 20150901
  5. URSODIOL. [Concomitant]
     Active Substance: URSODIOL
     Dosage: 1 G, QD
  6. SALOFALK [Concomitant]
     Active Substance: MESALAMINE
     Dosage: UNK, QD
  7. PENTASA [Concomitant]
     Active Substance: MESALAMINE
     Dosage: UNK
     Dates: start: 20150804

REACTIONS (1)
  - Hepatic vascular thrombosis [Not Recovered/Not Resolved]
